FAERS Safety Report 8167641-X (Version None)
Quarter: 2012Q1

REPORT INFORMATION
  Report Type: 
  Country: None (occurrence: None)
  Receive Date: 20120227
  Receipt Date: 20120222
  Transmission Date: 20120608
  Serious: Yes (Death, Hospitalization)
  Sender: FDA-Public Use
  Company Number: SE-ROCHE-1038812

PATIENT
  Age: 71 Year
  Sex: Female

DRUGS (1)
  1. RITUXAN [Suspect]
     Indication: RHEUMATOID ARTHRITIS
     Dosage: 1000 MG TWICE, LAST DOSE PRIOR SAE: 22 FEB 2012.
     Route: 042
     Dates: start: 20111006, end: 20111022

REACTIONS (1)
  - RESPIRATORY FAILURE [None]
